FAERS Safety Report 5584737-7 (Version None)
Quarter: 2008Q1

REPORT INFORMATION
  Report Type: 
  Country: None (occurrence: None)
  Receive Date: 20080108
  Receipt Date: 20080104
  Transmission Date: 20080703
  Serious: Yes (Other)
  Sender: FDA-Public Use
  Company Number: US-PFIZER INC-2008001403

PATIENT
  Sex: Female
  Weight: 90.7 kg

DRUGS (4)
  1. LIPITOR [Suspect]
     Indication: BLOOD CHOLESTEROL
     Route: 048
     Dates: start: 20071001, end: 20080101
  2. HYDROCHLOROTHIAZIDE [Concomitant]
     Route: 048
  3. AMLODIPINE [Concomitant]
     Route: 048
  4. ANASTROZOLE [Concomitant]
     Route: 048

REACTIONS (2)
  - DYSSTASIA [None]
  - PAIN IN EXTREMITY [None]
